FAERS Safety Report 4846808-X (Version None)
Quarter: 2005Q4

REPORT INFORMATION
  Report Type: 
  Country: None (occurrence: None)
  Receive Date: 20051207
  Receipt Date: 20051128
  Transmission Date: 20060501
  Serious: Yes (Hospitalization, Other)
  Sender: FDA-Public Use
  Company Number: PHNU2005DE03896

PATIENT
  Age: 62 Year
  Sex: Male
  Weight: 72 kg

DRUGS (1)
  1. LAMISIL [Suspect]
     Indication: ONYCHOMYCOSIS
     Dosage: 250 MG, QD
     Route: 048
     Dates: start: 20050601

REACTIONS (50)
  - ALANINE AMINOTRANSFERASE INCREASED [None]
  - ALPHA 2 GLOBULIN INCREASED [None]
  - ANOREXIA [None]
  - ASPARTATE AMINOTRANSFERASE INCREASED [None]
  - ASTHENIA [None]
  - BLOOD ALBUMIN DECREASED [None]
  - BLOOD ALKALINE PHOSPHATASE INCREASED [None]
  - BLOOD CALCIUM DECREASED [None]
  - BLOOD CHOLESTEROL INCREASED [None]
  - BLOOD CREATINE PHOSPHOKINASE INCREASED [None]
  - BLOOD IRON INCREASED [None]
  - BLOOD LACTATE DEHYDROGENASE INCREASED [None]
  - BLOOD POTASSIUM DECREASED [None]
  - BLOOD SODIUM DECREASED [None]
  - BLOOD TRIGLYCERIDES INCREASED [None]
  - BLOOD URIC ACID INCREASED [None]
  - CARDIOMYOPATHY [None]
  - CYTOMEGALOVIRUS ANTIBODY POSITIVE [None]
  - FATIGUE [None]
  - GAMMA-GLUTAMYLTRANSFERASE INCREASED [None]
  - HAEMATOCRIT DECREASED [None]
  - HAEMOGLOBIN DECREASED [None]
  - HEPATIC STEATOSIS [None]
  - HEPATITIS TOXIC [None]
  - HEPATOMEGALY [None]
  - HYPERLIPIDAEMIA [None]
  - HYPOKALAEMIA [None]
  - IMMUNOGLOBULINS INCREASED [None]
  - INTERNATIONAL NORMALISED RATIO DECREASED [None]
  - KYPHOSCOLIOSIS [None]
  - LIPASE INCREASED [None]
  - LIVER FUNCTION TEST ABNORMAL [None]
  - MEAN CELL HAEMOGLOBIN CONCENTRATION INCREASED [None]
  - MEAN CELL HAEMOGLOBIN INCREASED [None]
  - MEAN CELL VOLUME INCREASED [None]
  - NAUSEA [None]
  - PANCREAS LIPOMATOSIS [None]
  - PANCREATITIS CHRONIC [None]
  - PLATELET COUNT DECREASED [None]
  - PROSTATE EXAMINATION ABNORMAL [None]
  - PROTEIN TOTAL DECREASED [None]
  - PROTEIN URINE PRESENT [None]
  - PROTHROMBIN TIME PROLONGED [None]
  - RED BLOOD CELL COUNT DECREASED [None]
  - RENAL DISORDER [None]
  - RIGHT VENTRICULAR FAILURE [None]
  - TRANSFERRIN INCREASED [None]
  - URINE KETONE BODY PRESENT [None]
  - VENTRICULAR DYSFUNCTION [None]
  - WHITE BLOOD CELLS URINE POSITIVE [None]
